FAERS Safety Report 5636333-0 (Version None)
Quarter: 2008Q1

REPORT INFORMATION
  Report Type: 
  Country: None (occurrence: None)
  Receive Date: 20080225
  Receipt Date: 20080218
  Transmission Date: 20080703
  Serious: Yes (Other)
  Sender: FDA-Public Use
  Company Number: PHHY2008JP02003

PATIENT
  Age: 29 Year
  Sex: Male

DRUGS (1)
  1. VOLTAREN [Suspect]
     Dosage: 50 MG
     Route: 054
     Dates: start: 20070201, end: 20070201

REACTIONS (1)
  - OCULOMUCOCUTANEOUS SYNDROME [None]
